FAERS Safety Report 5550939-9 (Version None)
Quarter: 2007Q4

REPORT INFORMATION
  Report Type: 
  Country: None (occurrence: None)
  Receive Date: 20071212
  Receipt Date: 20070521
  Transmission Date: 20080405
  Serious: No
  Sender: FDA-Public Use
  Company Number: US-AMGEN-KDL225811

PATIENT
  Sex: Male

DRUGS (3)
  1. ENBREL [Suspect]
     Indication: ANKYLOSING SPONDYLITIS
     Route: 058
     Dates: start: 20070501
  2. SULFASALAZINE [Concomitant]
     Dates: start: 20070201
  3. METHOTREXATE [Concomitant]
     Dates: start: 20070301

REACTIONS (2)
  - ARTHRALGIA [None]
  - JOINT STIFFNESS [None]
